FAERS Safety Report 8720601 (Version 1)
Quarter: 2012Q4

REPORT INFORMATION
  Report Type: 
  Country: US (occurrence: US)
  Receive Date: 20120912
  Receipt Date: 20120912
  Transmission Date: 20130627
  Serious: Yes (Hospitalization, Other)
  Sender: FDA-Public Use
  Company Number: US-ROCHE-1098886

PATIENT
  Age: 39 Year
  Sex: Male

DRUGS (4)
  1. ACTIVASE [Suspect]
     Indication: ACUTE MYOCARDIAL INFARCTION
     Dosage: accelerated regimen 100 mg over 9 mins
     Route: 065
  2. MORPHINE [Concomitant]
  3. LOPRESSOR [Concomitant]
  4. HEPARIN IV (BOLUS) [Concomitant]

REACTIONS (3)
  - Electrocardiogram ST segment depression [Unknown]
  - Bronchitis [Unknown]
  - Headache [Unknown]
